FAERS Safety Report 4864116-8 (Version None)
Quarter: 2005Q4

REPORT INFORMATION
  Report Type: 
  Country: None (occurrence: None)
  Receive Date: 20051222
  Receipt Date: 20050916
  Transmission Date: 20060501
  Serious: Yes (Hospitalization)
  Sender: FDA-Public Use
  Company Number: JP-JPN-A20052215

PATIENT
  Age: 50 Year
  Sex: Female
  Weight: 38 kg

DRUGS (6)
  1. ZANTAC [Suspect]
     Dosage: 150MG TWICE PER DAY
     Route: 048
     Dates: start: 20050615, end: 20050623
  2. PREDONINE [Concomitant]
     Route: 042
     Dates: start: 20050619, end: 20050619
  3. MARZULENE S [Concomitant]
     Indication: GASTRITIS
     Dosage: 1.5G PER DAY
     Route: 048
     Dates: start: 20050603
  4. MAGNESIUM OXIDE [Concomitant]
     Indication: CONSTIPATION
     Route: 048
     Dates: start: 20050615
  5. AMOBAN [Concomitant]
     Indication: INSOMNIA
     Route: 048
     Dates: start: 20050615
  6. SOLU-MEDROL [Concomitant]
     Dates: start: 20050616, end: 20050618

REACTIONS (4)
  - MUSCULAR WEAKNESS [None]
  - PRURIGO [None]
  - PRURITUS [None]
  - RASH [None]
